FAERS Safety Report 14421453 (Version 2)
Quarter: 2019Q2

REPORT INFORMATION
  Report Type: Spontaneous
  Country: US (occurrence: US)
  Receive Date: 20180122
  Receipt Date: 20190606
  Transmission Date: 20190711
  Serious: No
  Sender: FDA-Public Use
  Company Number: US-ALLERGAN-1760758US

PATIENT

DRUGS (2)
  1. KYBELLA [Suspect]
     Active Substance: DEOXYCHOLIC ACID
     Indication: FAT TISSUE INCREASED
     Dosage: 3 VIALS, SINGLE
     Route: 058
     Dates: start: 201702, end: 201702
  2. KYBELLA [Suspect]
     Active Substance: DEOXYCHOLIC ACID
     Dosage: 2 VIALS, SINGLE
     Route: 058
     Dates: start: 201608, end: 201608

REACTIONS (3)
  - Lymphadenopathy [Not Recovered/Not Resolved]
  - Therapeutic response decreased [Unknown]
  - Swelling face [Not Recovered/Not Resolved]
